FAERS Safety Report 7420861-1 (Version None)
Quarter: 2011Q2

REPORT INFORMATION
  Report Type: 
  Country: None (occurrence: None)
  Receive Date: 20110418
  Receipt Date: 20110407
  Transmission Date: 20111010
  Serious: Yes (Death, Hospitalization)
  Sender: FDA-Public Use
  Company Number: DE-ROCHE-770444

PATIENT
  Sex: Male

DRUGS (3)
  1. AVASTIN [Suspect]
     Route: 042
     Dates: start: 20110117, end: 20110214
  2. FLUOROURACIL [Concomitant]
     Route: 042
     Dates: start: 20110117, end: 20110214
  3. IRINOTECAN [Concomitant]
     Route: 042
     Dates: start: 20110117, end: 20110214

REACTIONS (3)
  - MULTI-ORGAN FAILURE [None]
  - SEPTIC SHOCK [None]
  - INTESTINAL PERFORATION [None]
